FAERS Safety Report 5968221-4 (Version None)
Quarter: 2008Q4

REPORT INFORMATION
  Report Type: 
  Country: None (occurrence: None)
  Receive Date: 20081126
  Receipt Date: 20081121
  Transmission Date: 20090506
  Serious: Yes (Hospitalization)
  Sender: FDA-Public Use
  Company Number: B0546653A

PATIENT
  Age: 39 Year
  Sex: Female
  Weight: 80 kg

DRUGS (1)
  1. AMOXICILLIN + CLAVULANATE POTASSIUM [Suspect]
     Indication: BLADDER DISCOMFORT
     Route: 048
     Dates: start: 20081016

REACTIONS (2)
  - ABDOMINAL PAIN [None]
  - GASTROINTESTINAL INFECTION [None]
